FAERS Safety Report 7564102-3 (Version None)
Quarter: 2011Q2

REPORT INFORMATION
  Report Type: 
  Country: None (occurrence: None)
  Receive Date: 20110622
  Receipt Date: 20110615
  Transmission Date: 20111010
  Serious: Yes (Hospitalization)
  Sender: FDA-Public Use
  Company Number: US-B.I. PHARMACEUTICALS,INC./RIDGEFIELD-2011-BP-14907BP

PATIENT
  Sex: Male

DRUGS (12)
  1. LEVITRA [Concomitant]
     Route: 048
  2. PRADAXA [Suspect]
     Indication: ATRIAL FIBRILLATION
     Dosage: 300 MG
     Route: 048
     Dates: start: 20101201
  3. LANOXIN [Concomitant]
     Route: 048
     Dates: start: 20100510
  4. COZAAR [Concomitant]
     Route: 048
  5. ZOCOR [Concomitant]
     Route: 048
  6. LASIX [Concomitant]
     Route: 048
  7. VITAMIN D [Concomitant]
     Route: 048
     Dates: start: 20110511
  8. ASPIRIN [Concomitant]
     Route: 048
     Dates: start: 20100510
  9. ALLEGRA [Concomitant]
     Route: 048
  10. CARVEDILOL PHOSPHATE [Concomitant]
     Route: 048
     Dates: start: 20100510
  11. NEXIUM [Concomitant]
     Route: 048
     Dates: start: 20100510
  12. AMLODIPINE [Concomitant]

REACTIONS (9)
  - DYSARTHRIA [None]
  - MUSCLE SPASMS [None]
  - CONTUSION [None]
  - HYPERTENSION [None]
  - DYSPNOEA [None]
  - COUGH [None]
  - CEREBROVASCULAR ACCIDENT [None]
  - ASTHENIA [None]
  - FEELING ABNORMAL [None]
